FAERS Safety Report 16013845 (Version 1)
Quarter: 2019Q1

REPORT INFORMATION
  Report Type: Spontaneous
  Country: US (occurrence: US)
  Receive Date: 20190227
  Receipt Date: 20190227
  Transmission Date: 20190418
  Serious: Yes (Other)
  Sender: FDA-Public Use
  Company Number: US-SA-2017SA257576

PATIENT
  Age: 56 Year
  Sex: Female
  Weight: 104.32 kg

DRUGS (9)
  1. TAXOTERE [Suspect]
     Active Substance: DOCETAXEL
     Indication: BREAST CANCER FEMALE
     Dosage: 60MG AND 75MG
     Route: 042
     Dates: start: 20140624, end: 20140624
  2. TAXOTERE [Suspect]
     Active Substance: DOCETAXEL
     Dosage: 60MG AND 75MG
     Route: 042
     Dates: start: 20140910, end: 20140910
  3. CYTOXAN [Concomitant]
     Active Substance: CYCLOPHOSPHAMIDE
  4. METFORMIN [Concomitant]
     Active Substance: METFORMIN HYDROCHLORIDE
  5. NEOSAR [Concomitant]
     Active Substance: CYCLOPHOSPHAMIDE
     Dosage: UNK UNK,QCY
     Route: 065
  6. IRON [Concomitant]
     Active Substance: IRON
  7. LISINOPRIL. [Concomitant]
     Active Substance: LISINOPRIL
  8. DILTIAZEM. [Concomitant]
     Active Substance: DILTIAZEM
  9. NEOSAR [Concomitant]
     Active Substance: CYCLOPHOSPHAMIDE
     Dosage: UNK UNK,QCY
     Route: 065

REACTIONS (2)
  - Alopecia [Recovering/Resolving]
  - Psychological trauma [Unknown]

NARRATIVE: CASE EVENT DATE: 20140624
